FAERS Safety Report 4357405-7 (Version None)
Quarter: 2004Q2

REPORT INFORMATION
  Report Type: 
  Country: None (occurrence: None)
  Receive Date: 20040511
  Receipt Date: 20040511
  Transmission Date: 20050107
  Serious: Yes (Other)
  Sender: FDA-Public Use
  Company Number: None

PATIENT
  Sex: Male
  Weight: 139.2543 kg

DRUGS (14)
  1. LISINOPRIL [Suspect]
     Indication: HYPERTENSION
     Dosage: 20 MG PO QD
     Route: 048
     Dates: start: 20031121, end: 20031218
  2. LISINOPRIL [Suspect]
     Indication: HYPERTENSION
     Dosage: 10 MG PO QD
     Route: 048
     Dates: start: 20030820, end: 20031121
  3. ACETAMINOPHEN [Concomitant]
  4. ALBUTEROL [Concomitant]
  5. DIPHENHYDRAMINE HCL [Concomitant]
  6. DOCUSATE NA [Concomitant]
  7. HALOPERIDOL [Concomitant]
  8. HYDROCHLOROTHIAZIDE [Concomitant]
  9. METFORMIN HCL [Concomitant]
  10. OLANZAPINE [Concomitant]
  11. OXYCODONE [Concomitant]
  12. ROSIGLITAZONE MALEATE [Concomitant]
  13. SERTRALINE HCL [Concomitant]
  14. ZIPRASIDONE HCL [Concomitant]

REACTIONS (1)
  - SWELLING FACE [None]
